FAERS Safety Report 7722012-2 (Version None)
Quarter: 2011Q3

REPORT INFORMATION
  Report Type: 
  Country: None (occurrence: None)
  Receive Date: 20110831
  Receipt Date: 20110822
  Transmission Date: 20111222
  Serious: Yes (Death, Other)
  Sender: FDA-Public Use
  Company Number: NO-BAYER-2011-075282

PATIENT
  Age: 40 Year
  Sex: Male

DRUGS (5)
  1. SUTENT [Suspect]
  2. NEXAVAR [Suspect]
  3. EVEROLIMUS [Suspect]
  4. AVASTIN [Suspect]
  5. INTERFERON ALFA-2A [Suspect]

REACTIONS (6)
  - SLEEP DISORDER [None]
  - PNEUMONIA [None]
  - METASTASES TO LUNG [None]
  - HEADACHE [None]
  - DISEASE PROGRESSION [None]
  - HAEMOPTYSIS [None]
